FAERS Safety Report 8272958-4 (Version None)
Quarter: 2012Q2

REPORT INFORMATION
  Report Type: 
  Country: None (occurrence: None)
  Receive Date: 20120406
  Receipt Date: 20120406
  Transmission Date: 20120825
  Serious: No
  Sender: FDA-Public Use
  Company Number: None

PATIENT

DRUGS (1)
  1. WELCHOL [Suspect]
     Indication: LOW DENSITY LIPOPROTEIN INCREASED
     Dosage: 3.75G 1 X PER DAY
     Dates: start: 20120227, end: 20120319

REACTIONS (2)
  - CONSTIPATION [None]
  - HYPERTENSION [None]
